FAERS Safety Report 11907522 (Version 2)
Quarter: 2016Q3

REPORT INFORMATION
  Report Type: Spontaneous
  Country: US (occurrence: US)
  Receive Date: 20160111
  Receipt Date: 20160803
  Transmission Date: 20161109
  Serious: Yes (Other)
  Sender: FDA-Public Use
  Company Number: US-ASTRAZENECA-2016SE02044

PATIENT
  Sex: Female

DRUGS (1)
  1. TUDORZA PRESSAIR [Suspect]
     Active Substance: ACLIDINIUM BROMIDE
     Dosage: ONE INHALATION TWO TIMES PER DAY
     Route: 055
     Dates: start: 2013

REACTIONS (3)
  - Asthma [Unknown]
  - Underdose [Unknown]
  - Device malfunction [Unknown]
